FAERS Safety Report 8418333-0 (Version None)
Quarter: 2012Q2

REPORT INFORMATION
  Report Type: 
  Country: None (occurrence: None)
  Receive Date: 20120607
  Receipt Date: 20120530
  Transmission Date: 20120825
  Serious: Yes (Life-Threatening, Hospitalization)
  Sender: FDA-Public Use
  Company Number: FR-NOVOPROD-352947

PATIENT
  Age: 31 Year
  Sex: Female

DRUGS (18)
  1. NOVOSEVEN [Suspect]
     Indication: THIRD STAGE POSTPARTUM HAEMORRHAGE
     Dosage: 4 MG, QD
     Route: 042
     Dates: start: 20120108, end: 20120108
  2. CELOCURINE                         /00057702/ [Concomitant]
     Indication: ENDOTRACHEAL INTUBATION
     Dosage: UNK
     Route: 042
     Dates: start: 20120108, end: 20120108
  3. CEFAZOLIN [Suspect]
     Indication: ANTIBIOTIC PROPHYLAXIS
     Dosage: ONCE DAILY
     Route: 042
     Dates: start: 20120108, end: 20120108
  4. TRACRIUM [Concomitant]
     Indication: ANAESTHESIA
     Dosage: UNK
     Route: 042
     Dates: start: 20120108, end: 20120108
  5. PHENYLEPHRINE HCL [Concomitant]
     Indication: SPINAL ANAESTHESIA
  6. EPHEDRINE [Suspect]
     Indication: SPINAL ANAESTHESIA
     Dosage: 60 MG, QD
     Route: 042
     Dates: start: 20120108, end: 20120108
  7. OMEPRAZOLE [Suspect]
     Indication: POSTPARTUM HAEMORRHAGE
     Dosage: 4 G, QD
     Route: 042
     Dates: start: 20120108, end: 20120108
  8. TAGAMET [Suspect]
     Indication: SPINAL ANAESTHESIA
     Dosage: 400 MG, QD
     Dates: start: 20120108, end: 20120108
  9. MARCAINE HCL [Suspect]
     Indication: SPINAL ANAESTHESIA
     Dosage: 10 MG, QD
     Route: 008
  10. SEVOFLURANE [Suspect]
     Indication: ANAESTHESIA
     Dosage: UNK
     Route: 055
     Dates: start: 20120108, end: 20120108
  11. FRESH FROZEN PLASMA [Concomitant]
     Indication: THIRD STAGE POSTPARTUM HAEMORRHAGE
     Dosage: 3 PACKS OF FRESH FROZEN PLASMA
  12. CLOTTAFACT [Suspect]
     Indication: THIRD STAGE POSTPARTUM HAEMORRHAGE
     Dosage: 6 G, QD
     Route: 042
     Dates: start: 20120108, end: 20120108
  13. NALADOR [Suspect]
     Indication: PRODUCT USED FOR UNKNOWN INDICATION
     Dosage: 1000 A?G, QD
     Route: 042
     Dates: start: 20120108, end: 20120108
  14. DIPRIVAN [Concomitant]
     Dosage: UNK
     Route: 042
     Dates: start: 20120108, end: 20120108
  15. RED BLOOD CELLS [Concomitant]
  16. PABAL [Suspect]
     Indication: UTERINE ATONY
     Dosage: 100 A?G, QD
     Route: 042
     Dates: start: 20120108, end: 20120108
  17. VOLUVEN [Concomitant]
     Indication: POSTPARTUM HAEMORRHAGE
  18. PLATELETS, CONCENTRATED [Concomitant]
     Indication: THIRD STAGE POSTPARTUM HAEMORRHAGE

REACTIONS (2)
  - RENAL FAILURE ACUTE [None]
  - DIALYSIS [None]
